FAERS Safety Report 16497487 (Version 1)
Quarter: 2019Q2

REPORT INFORMATION
  Report Type: Spontaneous
  Country: AU (occurrence: AU)
  Receive Date: 20190628
  Receipt Date: 20190628
  Transmission Date: 20190711
  Serious: Yes (Hospitalization, Other)
  Sender: FDA-Public Use
  Company Number: AU-MYLANLABS-2019M1058814

PATIENT
  Age: 27 Year
  Sex: Male

DRUGS (2)
  1. CLOZARIL [Suspect]
     Active Substance: CLOZAPINE
     Indication: SCHIZOPHRENIA
     Dosage: 275 MILLIGRAM
     Route: 048
     Dates: start: 20190401
  2. METHAMPHETAMINE [Suspect]
     Active Substance: METHAMPHETAMINE
     Indication: PRODUCT USED FOR UNKNOWN INDICATION
     Dosage: UNK

REACTIONS (10)
  - Physical assault [Unknown]
  - Troponin increased [Unknown]
  - Mental disorder [Unknown]
  - Neutrophil count increased [Unknown]
  - Head injury [Unknown]
  - White blood cell count increased [Unknown]
  - Alcoholism [Unknown]
  - Blood creatine phosphokinase increased [Unknown]
  - Product dose omission [Unknown]
  - C-reactive protein increased [Unknown]

NARRATIVE: CASE EVENT DATE: 201906
